FAERS Safety Report 9276720 (Version 2)
Quarter: 2014Q1

REPORT INFORMATION
  Report Type: Report from Study
  Country: US (occurrence: US)
  Receive Date: 20130507
  Receipt Date: 20140313
  Transmission Date: 20141002
  Serious: Yes (Hospitalization)
  Sender: FDA-Public Use
  Company Number: US-ELI_LILLY_AND_COMPANY-US201211008471

PATIENT
  Age: 78 Year
  Sex: Female

DRUGS (1)
  1. TERIPARATIDE [Suspect]
     Indication: OSTEOPOROSIS
     Dosage: UNK, QD
     Route: 065
     Dates: start: 20121114

REACTIONS (10)
  - Patella fracture [Unknown]
  - Fall [Unknown]
  - Fatigue [Unknown]
  - Abdominal discomfort [Unknown]
  - Arthralgia [Unknown]
  - Gait disturbance [Unknown]
  - Somnolence [Unknown]
  - Fall [Unknown]
  - Foot fracture [Recovering/Resolving]
  - Fatigue [Unknown]
